FAERS Safety Report 5219183-9 (Version None)
Quarter: 2007Q1

REPORT INFORMATION
  Report Type: 
  Country: None (occurrence: None)
  Receive Date: 20070122
  Receipt Date: 20070109
  Transmission Date: 20070707
  Serious: Yes (Hospitalization, Disabling)
  Sender: FDA-Public Use
  Company Number: HQ2116930APR2002

PATIENT
  Age: 34 Year
  Sex: Female

DRUGS (5)
  1. EFFEXOR [Suspect]
     Indication: DEPRESSION
     Dosage: 150 MG 1X PER 1 DAY; ORAL; 75 MG 1X PER 1 DAY; ORAL
     Route: 048
     Dates: start: 20001202, end: 20011204
  2. EFFEXOR [Suspect]
     Indication: SUICIDAL IDEATION
     Dosage: 150 MG 1X PER 1 DAY; ORAL; 75 MG 1X PER 1 DAY; ORAL
     Route: 048
     Dates: start: 20001202, end: 20011204
  3. EFFEXOR [Suspect]
     Indication: DEPRESSION
     Dosage: 150 MG 1X PER 1 DAY; ORAL; 75 MG 1X PER 1 DAY; ORAL
     Route: 048
     Dates: start: 20011205, end: 20020121
  4. EFFEXOR [Suspect]
     Indication: SUICIDAL IDEATION
     Dosage: 150 MG 1X PER 1 DAY; ORAL; 75 MG 1X PER 1 DAY; ORAL
     Route: 048
     Dates: start: 20011205, end: 20020121
  5. LORAZEPAM [Concomitant]

REACTIONS (20)
  - ACTIVATED PARTIAL THROMBOPLASTIN TIME PROLONGED [None]
  - CHOLESTASIS [None]
  - DIZZINESS POSTURAL [None]
  - DRUG TOXICITY [None]
  - HAEMOCHROMATOSIS [None]
  - HEADACHE [None]
  - HEPATIC CIRRHOSIS [None]
  - HEPATIC FAILURE [None]
  - HEPATIC FIBROSIS [None]
  - HEPATIC NECROSIS [None]
  - HEPATIC NEOPLASM [None]
  - HEPATITIS [None]
  - LYMPHOPENIA [None]
  - MUSCULAR WEAKNESS [None]
  - MYALGIA [None]
  - OEDEMA [None]
  - PLATELET COUNT DECREASED [None]
  - PORTAL VEIN OCCLUSION [None]
  - SINUS BRADYCARDIA [None]
  - WEIGHT DECREASED [None]
